FAERS Safety Report 4957719-3 (Version None)
Quarter: 2006Q1

REPORT INFORMATION
  Report Type: 
  Country: None (occurrence: None)
  Receive Date: 20060330
  Receipt Date: 20060317
  Transmission Date: 20060701
  Serious: Yes (Other)
  Sender: FDA-Public Use
  Company Number: FR-JNJFOC-20060304814

PATIENT
  Age: 7 Year
  Sex: Female

DRUGS (1)
  1. EPITOMAX [Suspect]
     Indication: EPILEPSY
     Route: 048

REACTIONS (1)
  - INTERSTITIAL LUNG DISEASE [None]
